FAERS Safety Report 7301094-6 (Version None)
Quarter: 2011Q1

REPORT INFORMATION
  Report Type: 
  Country: None (occurrence: None)
  Receive Date: 20110218
  Receipt Date: 20110208
  Transmission Date: 20110831
  Serious: Yes (Other)
  Sender: FDA-Public Use
  Company Number: NO-BRISTOL-MYERS SQUIBB COMPANY-15544588

PATIENT

DRUGS (2)
  1. ABATACEPT [Suspect]
     Indication: RHEUMATOID ARTHRITIS
  2. PREDNISOLONE [Suspect]
     Dosage: DOSE REDUCED

REACTIONS (2)
  - IRIDOCYCLITIS [None]
  - UVEITIS [None]
